FAERS Safety Report 4298565-6 (Version None)
Quarter: 2004Q1

REPORT INFORMATION
  Report Type: 
  Country: None (occurrence: None)
  Receive Date: 20040126
  Receipt Date: 20030918
  Transmission Date: 20041129
  Serious: No
  Sender: FDA-Public Use
  Company Number: USA030947627

PATIENT
  Age: 8 Year
  Sex: Male
  Weight: 34 kg

DRUGS (2)
  1. STRATTERA [Suspect]
     Indication: ATTENTION DEFICIT/HYPERACTIVITY DISORDER
     Dosage: 60 MG/DAY
     Dates: start: 20030701
  2. CLONIDINE [Concomitant]

REACTIONS (7)
  - DRUG INEFFECTIVE [None]
  - FEELING JITTERY [None]
  - LOGORRHOEA [None]
  - PRESCRIBED OVERDOSE [None]
  - SEDATION [None]
  - SOMNOLENCE [None]
  - WEIGHT INCREASED [None]
